FAERS Safety Report 8234726-9 (Version None)
Quarter: 2012Q1

REPORT INFORMATION
  Report Type: 
  Country: None (occurrence: None)
  Receive Date: 20120326
  Receipt Date: 20120316
  Transmission Date: 20120608
  Serious: No
  Sender: FDA-Public Use
  Company Number: US-PFIZER INC-2012054077

PATIENT
  Sex: Female
  Weight: 81.633 kg

DRUGS (23)
  1. PHENAZOPYRIDINE HCL TAB [Concomitant]
     Dosage: 200 MG 3 TIMES DAILY AS NEEDED
  2. TOPAMAX [Concomitant]
     Dosage: 200 MG, 1X/DAY
  3. LORCET-HD [Concomitant]
     Dosage: 10 MG/650MG EVERY 4-6 HOURS AS NEEDED
  4. LYRICA [Suspect]
     Indication: FIBROMYALGIA
     Dosage: 100 MG, 3X/DAY
     Route: 048
  5. LISINOPRIL [Concomitant]
     Dosage: 20 MG, 1X/DAY
  6. MACROBID [Concomitant]
     Dosage: 100 MG, 2X/DAY
  7. ACYCLOVIR [Concomitant]
     Dosage: 400 MG THREE TIMES DAILY AS NEEDED
  8. LYRICA [Suspect]
     Indication: MIGRAINE
  9. CLONAZEPAM [Concomitant]
     Dosage: 1 MG EVERY 6 HOURS AS NEEDED
  10. LASIX [Concomitant]
     Dosage: 20 MG, 1X/DAY
  11. PRAVASTATIN [Concomitant]
     Dosage: 400 MG, 1X/DAY
     Route: 048
  12. WELLBUTRIN XL [Concomitant]
     Dosage: 150 MG, 1X/DAY
  13. ADIPEX-P [Concomitant]
     Dosage: 37.5 MG, 1X/DAY
  14. METOPROLOL TARTRATE [Concomitant]
     Dosage: UNK, 2X/DAY
  15. PHENERGAN HCL [Concomitant]
     Dosage: 25 MG, ONCE EVERY 4-6 HOURS AS NEEDED
  16. GLUCOTROL XL [Concomitant]
     Dosage: 10 MG, 1X/DAY PRN
  17. ATARAX [Concomitant]
     Dosage: 25 MG EVERY 6 HOURS AS NEEDED
  18. METFORMIN [Concomitant]
     Dosage: 500 MG, 3X/DAY
  19. SOMA [Concomitant]
     Dosage: 350 MG EVERY 6 HOURS AS NEEDED
  20. SINGULAIR [Concomitant]
     Dosage: 5 MG, UNK
  21. PROZAC [Concomitant]
     Dosage: 40 MG, 2X/DAY
  22. LOMOTIL [Concomitant]
     Dosage: 2.5 MG, 1-2 TABS EVERY 4-6 HOURS AS NEEDED
  23. ASPIRIN [Concomitant]
     Dosage: 81 MG, 1X/DAY

REACTIONS (7)
  - NECK PAIN [None]
  - FEELING ABNORMAL [None]
  - PAIN [None]
  - DECREASED INTEREST [None]
  - INSOMNIA [None]
  - DRUG INEFFECTIVE [None]
  - MUSCULOSKELETAL PAIN [None]
